FAERS Safety Report 7885007-4 (Version None)
Quarter: 2011Q4

REPORT INFORMATION
  Report Type: 
  Country: None (occurrence: None)
  Receive Date: 20111102
  Receipt Date: 20111027
  Transmission Date: 20120403
  Serious: Yes (Other)
  Sender: FDA-Public Use
  Company Number: JP-PFIZER INC-2011261794

PATIENT
  Age: 65 Year
  Sex: Female

DRUGS (3)
  1. PREGABALIN [Suspect]
     Dosage: 75 MG, 2X/DAY
     Route: 048
     Dates: start: 20110909
  2. PREGABALIN [Suspect]
     Indication: DIABETIC NEUROPATHY
     Dosage: 75 MG, 2X/DAY
     Route: 048
     Dates: start: 20110623, end: 20110721
  3. LOXONIN [Concomitant]
     Indication: ANALGESIC THERAPY
     Dosage: 100 MG, 1X/DAY
     Dates: start: 20110630

REACTIONS (1)
  - DECREASED APPETITE [None]
